FAERS Safety Report 14301735 (Version 1)
Quarter: 2017Q4

REPORT INFORMATION
  Report Type: Spontaneous
  Country: US (occurrence: US)
  Receive Date: 20171218
  Receipt Date: 20171218
  Transmission Date: 20180321
  Serious: No
  Sender: FDA-Public Use
  Company Number: None

PATIENT
  Age: 39 Year
  Sex: Female
  Weight: 67.5 kg

DRUGS (9)
  1. INVOKAMET [Concomitant]
     Active Substance: CANAGLIFLOZIN\METFORMIN HYDROCHLORIDE
  2. CRESTOR [Concomitant]
     Active Substance: ROSUVASTATIN CALCIUM
  3. VITAMIN D [Concomitant]
     Active Substance: CHOLECALCIFEROL
  4. LAMICTAL [Concomitant]
     Active Substance: LAMOTRIGINE
  5. COPAXONE [Suspect]
     Active Substance: GLATIRAMER ACETATE
     Indication: MULTIPLE SCLEROSIS RELAPSE
     Dosage: ?          QUANTITY:1 INJECTION(S);OTHER FREQUENCY:3 TIMES A WEEK;?
     Route: 058
     Dates: start: 20171204, end: 20171211
  6. TEGRETOL [Concomitant]
     Active Substance: CARBAMAZEPINE
  7. HYDROCORTISONE. [Concomitant]
     Active Substance: HYDROCORTISONE
  8. SYNTHROID [Concomitant]
     Active Substance: LEVOTHYROXINE SODIUM
  9. DEPAKOTE [Concomitant]
     Active Substance: DIVALPROEX SODIUM

REACTIONS (4)
  - Pyrexia [None]
  - Chills [None]
  - Rash erythematous [None]
  - Fatigue [None]

NARRATIVE: CASE EVENT DATE: 20171211
